FAERS Safety Report 8783448 (Version 1)
Quarter: 2012Q4

REPORT INFORMATION
  Report Type: 
  Country: US (occurrence: US)
  Receive Date: 20120913
  Receipt Date: 20120913
  Transmission Date: 20130627
  Serious: No
  Sender: FDA-Public Use
  Company Number: US-VERTEX PHARMACEUTICAL INC.-AE-2012-008345

PATIENT

DRUGS (8)
  1. INCIVEK [Suspect]
     Indication: HEPATITIS C
     Route: 048
     Dates: start: 20120601
  2. RIBAVIRIN [Concomitant]
     Indication: HEPATITIS C
     Route: 048
     Dates: start: 20120601
  3. PEGASYS [Concomitant]
     Indication: HEPATITIS C
     Route: 058
     Dates: start: 20120601
  4. IBUPROFEN [Concomitant]
     Indication: DISCOMFORT
     Route: 048
  5. CALAMINE MED LOT [Concomitant]
  6. BENADRYL CRE [Concomitant]
  7. GOLD BOND CRE [Concomitant]
  8. BENADRYL [Concomitant]

REACTIONS (16)
  - Influenza like illness [Unknown]
  - Pyrexia [Not Recovered/Not Resolved]
  - Haemorrhage subcutaneous [Unknown]
  - Mouth haemorrhage [Unknown]
  - Weight decreased [Not Recovered/Not Resolved]
  - Alopecia [Unknown]
  - Decreased appetite [Not Recovered/Not Resolved]
  - Crying [Unknown]
  - Irritability [Unknown]
  - Genital rash [Not Recovered/Not Resolved]
  - Feeling abnormal [Not Recovered/Not Resolved]
  - Fatigue [Not Recovered/Not Resolved]
  - Anorectal discomfort [Not Recovered/Not Resolved]
  - Diarrhoea [Not Recovered/Not Resolved]
  - Rash [Unknown]
  - Anaemia [Unknown]
